FAERS Safety Report 17926981 (Version 1)
Quarter: 2020Q2

REPORT INFORMATION
  Report Type: Spontaneous
  Country: US (occurrence: US)
  Receive Date: 20200621
  Receipt Date: 20200621
  Transmission Date: 20200714
  Serious: No
  Sender: FDA-Public Use
  Company Number: None

PATIENT
  Age: 74 Year
  Sex: Male

DRUGS (1)
  1. VANCOMYCIN (VANCOMYCIN  HCL 1GM/VIL INJ) [Suspect]
     Active Substance: VANCOMYCIN HYDROCHLORIDE
     Dosage: ?          OTHER ROUTE:IV?
     Route: 042
     Dates: start: 20180906, end: 20180906

REACTIONS (1)
  - Rash [None]

NARRATIVE: CASE EVENT DATE: 20180906
